FAERS Safety Report 22167883 (Version 1)
Quarter: 2023Q2

REPORT INFORMATION
  Report Type: Other
  Country: GB (occurrence: None)
  Receive Date: 20230403
  Receipt Date: 20230403
  Transmission Date: 20230721
  Serious: Yes (Other)
  Sender: FDA-Public Use
  Company Number: GB-ROCHE-3319670

PATIENT
  Age: 39 Year
  Sex: Female

DRUGS (2)
  1. RITUXIMAB [Suspect]
     Active Substance: RITUXIMAB
     Indication: Myasthenia gravis
     Route: 065
  2. PREDNISOLONE [Suspect]
     Active Substance: PREDNISOLONE
     Indication: Myasthenia gravis
     Route: 065

REACTIONS (4)
  - Premature delivery [Unknown]
  - Amniotic cavity infection [Recovered/Resolved]
  - COVID-19 [Recovered/Resolved]
  - Maternal exposure during pregnancy [Unknown]
